FAERS Safety Report 25244041 (Version 1)
Quarter: 2025Q2

REPORT INFORMATION
  Report Type: Spontaneous
  Country: US (occurrence: US)
  Receive Date: 20250428
  Receipt Date: 20250428
  Transmission Date: 20250716
  Serious: No
  Sender: AMGEN
  Company Number: US-AMGEN-USASP2025083581

PATIENT
  Sex: Female

DRUGS (13)
  1. OTEZLA [Suspect]
     Active Substance: APREMILAST
     Indication: Psoriasis
     Dosage: 30 MILLIGRAM, BID
     Route: 048
  2. D 400 [Concomitant]
  3. OMEPRAZOLE [Concomitant]
     Active Substance: OMEPRAZOLE
  4. ATORVASTATIN CALCIUM [Concomitant]
     Active Substance: ATORVASTATIN CALCIUM
  5. XYZAL ALLERGY 24HR [Concomitant]
     Active Substance: LEVOCETIRIZINE DIHYDROCHLORIDE
  6. XANAX [Concomitant]
     Active Substance: ALPRAZOLAM
  7. CELEXA [Concomitant]
     Active Substance: CITALOPRAM HYDROBROMIDE
  8. DOXEPIN HYDROCHLORIDE [Concomitant]
     Active Substance: DOXEPIN HYDROCHLORIDE
  9. STEGLATRO [Concomitant]
     Active Substance: ERTUGLIFLOZIN PIDOLATE
  10. OZEMPIC [Concomitant]
     Active Substance: SEMAGLUTIDE
  11. STRATTERA [Concomitant]
     Active Substance: ATOMOXETINE HYDROCHLORIDE
  12. TRADJENTA [Concomitant]
     Active Substance: LINAGLIPTIN
  13. FOLIC ACID [Concomitant]
     Active Substance: FOLIC ACID

REACTIONS (2)
  - Psoriasis [Unknown]
  - Therapy interrupted [Unknown]
